FAERS Safety Report 16007216 (Version 4)
Quarter: 2021Q3

REPORT INFORMATION
  Report Type: Report from Study
  Country: US (occurrence: US)
  Receive Date: 20190226
  Receipt Date: 20210923
  Transmission Date: 20211014
  Serious: No
  Sender: FDA-Public Use
  Company Number: PHEH2019US008701

PATIENT
  Sex: Male

DRUGS (3)
  1. ILARIS [Suspect]
     Active Substance: CANAKINUMAB
     Dosage: 225 MG, EVERY 4 WEEKS
     Route: 058
     Dates: start: 20190816
  2. ILARIS [Suspect]
     Active Substance: CANAKINUMAB
     Dosage: 225 MG/KG, QMO
     Route: 058
     Dates: start: 20210918
  3. ILARIS [Suspect]
     Active Substance: CANAKINUMAB
     Indication: STILL^S DISEASE
     Dosage: 225 MG, EVERY 4 WEEKS
     Route: 058

REACTIONS (2)
  - Incorrect dose administered [Unknown]
  - Inappropriate schedule of product administration [Unknown]
